FAERS Safety Report 19452435 (Version 1)
Quarter: 2021Q2

REPORT INFORMATION
  Report Type: Spontaneous
  Country: US (occurrence: US)
  Receive Date: 20210623
  Receipt Date: 20210623
  Transmission Date: 20210717
  Serious: Yes (Death)
  Sender: FDA-Public Use
  Company Number: None

PATIENT
  Age: 80 Year
  Sex: Female

DRUGS (14)
  1. ASPIRIN 81 MG TABLET [Concomitant]
  2. ATORVASTATIN 10 MG TABLET [Concomitant]
  3. SENNA 8.6 MG TABLET [Concomitant]
  4. CARBIDOPA/LEVODOPA 25?100 MG TABLET [Concomitant]
  5. ROPINIROLE 1 MG TABLET [Concomitant]
  6. DOCUSATE 100 MG CAPSULE [Concomitant]
     Active Substance: DOCUSATE SODIUM
  7. DICLOFENAC 1% GEL [Concomitant]
     Active Substance: DICLOFENAC
  8. LIDOCAINE 4% CREAM [Concomitant]
     Active Substance: LIDOCAINE
  9. ASPIRIN 325 MG EC TABLET [Concomitant]
  10. NOURIANZ [Suspect]
     Active Substance: ISTRADEFYLLINE
     Indication: PARKINSON^S DISEASE
     Route: 048
     Dates: start: 20210401, end: 20210610
  11. LOSARATAN/HCTZ 100/12.5 MG TABLET [Concomitant]
  12. SERTRALINE 50 MG TABLET [Concomitant]
  13. RASAGALINE 1 MG TABLET [Concomitant]
  14. DONEPEZIL 10 MG TABLET [Concomitant]

REACTIONS (1)
  - Death [None]

NARRATIVE: CASE EVENT DATE: 20210610
